FAERS Safety Report 5806606-7 (Version None)
Quarter: 2008Q3

REPORT INFORMATION
  Report Type: 
  Country: None (occurrence: None)
  Receive Date: 20080710
  Receipt Date: 20080630
  Transmission Date: 20090109
  Serious: Yes (Other)
  Sender: FDA-Public Use
  Company Number: PHEH2008US04336

PATIENT
  Sex: Female
  Weight: 160.54 kg

DRUGS (6)
  1. LOTENSIN HCT [Suspect]
     Dosage: 10/12.5MG QD
     Route: 048
     Dates: end: 20040731
  2. LOTENSIN [Suspect]
     Indication: HYPERTENSION
     Dosage: 10/12.5 PO QD
     Dates: end: 20031121
  3. LOTENSIN [Suspect]
     Dosage: 10/12.5 QD
     Route: 048
     Dates: start: 20040701
  4. ALDOMET [Suspect]
     Indication: HYPERTENSION
  5. CLARITIN [Concomitant]
     Indication: HYPERSENSITIVITY
  6. TYLENOL [Concomitant]
     Indication: HEADACHE

REACTIONS (6)
  - CAESAREAN SECTION [None]
  - DRUG EXPOSURE DURING PREGNANCY [None]
  - ERYTHEMA [None]
  - GESTATIONAL DIABETES [None]
  - NORMAL NEWBORN [None]
  - SKIN WARM [None]
